FAERS Safety Report 8849593 (Version 1)
Quarter: 2012Q4

REPORT INFORMATION
  Report Type: Spontaneous
  Country: US (occurrence: None)
  Receive Date: 20121018
  Receipt Date: 20121018
  Transmission Date: 20130627
  Serious: Yes (Hospitalization)
  Sender: FDA-Public Use
  Company Number: None

PATIENT
  Age: 29 Year
  Sex: Female
  Weight: 54.43 kg

DRUGS (2)
  1. ESCITALOPRAM [Suspect]
     Indication: ANXIETY DISORDER
     Dosage: 20mg one at bedtime  po
     Route: 048
     Dates: start: 20120521, end: 20120627
  2. ESCITALOPRAM [Suspect]
     Indication: PANIC DISORDER
     Dosage: 20mg one at bedtime  po
     Route: 048
     Dates: start: 20120521, end: 20120627

REACTIONS (3)
  - Product substitution issue [None]
  - Malaise [None]
  - Anxiety [None]
